FAERS Safety Report 9299810 (Version 2)
Quarter: 2013Q1

REPORT INFORMATION
  Report Type: Spontaneous
  Country: US (occurrence: None)
  Receive Date: 20121115
  Receipt Date: 20121115
  Transmission Date: 20140127
  Serious: No
  Sender: FDA-Public Use
  Company Number: JPI-P-025924

PATIENT
  Age: 61 Year
  Sex: Female
  Weight: 56.7 kg

DRUGS (4)
  1. XYREM (500 MILLIGRAM/MILLILITERS, SOLUTION)(SODIUM OXYBATE) [Suspect]
     Indication: SLEEP DISORDER
     Route: 048
     Dates: start: 20050408
  2. UNSPECIFIED INGREDIENT [Concomitant]
  3. LAMOTRIGINE [Concomitant]
  4. BLOOD PRESSURE MEDICINE [Concomitant]

REACTIONS (1)
  - Cervical vertebral fracture [None]
